FAERS Safety Report 8844784 (Version 1)
Quarter: 2012Q4

REPORT INFORMATION
  Report Type: Spontaneous
  Country: US (occurrence: None)
  Receive Date: 20121015
  Receipt Date: 20121015
  Transmission Date: 20130627
  Serious: No
  Sender: FDA-Public Use
  Company Number: AEUSA201200048

PATIENT
  Sex: Female

DRUGS (1)
  1. HYPERRHO [Suspect]
     Indication: PROPHYLAXIS AGAINST RH ISOIMMUNIZATION
     Dosage: 1500 IU;total;IM
     Route: 030
     Dates: start: 20120202, end: 20120202

REACTIONS (1)
  - Expired drug administered [None]
